FAERS Safety Report 8244404-8 (Version None)
Quarter: 2012Q1

REPORT INFORMATION
  Report Type: 
  Country: None (occurrence: None)
  Receive Date: 20120329
  Receipt Date: 20120322
  Transmission Date: 20120608
  Serious: Yes (Life-Threatening, Hospitalization, Other)
  Sender: FDA-Public Use
  Company Number: US-JNJFOC-20120212253

PATIENT
  Sex: Male
  Weight: 113.4 kg

DRUGS (10)
  1. KLOR-CON [Concomitant]
  2. LASIX [Concomitant]
  3. SIMPONI [Suspect]
     Route: 058
     Dates: start: 20120126
  4. ASPIRIN [Concomitant]
  5. NORVASC [Concomitant]
  6. SIMPONI [Suspect]
     Indication: ANKYLOSING SPONDYLITIS
     Route: 058
     Dates: start: 20120126
  7. SIMPONI [Suspect]
     Route: 058
     Dates: start: 20120222, end: 20120223
  8. TYLENOL W/ CODEINE [Concomitant]
  9. SIMPONI [Suspect]
     Indication: PSORIATIC ARTHROPATHY
     Route: 058
     Dates: start: 20120222, end: 20120223
  10. INDOMETHACIN [Concomitant]

REACTIONS (5)
  - CHEST DISCOMFORT [None]
  - PYREXIA [None]
  - HEADACHE [None]
  - BRADYCARDIA [None]
  - PSORIASIS [None]
